FAERS Safety Report 19599874 (Version 2)
Quarter: 2021Q3

REPORT INFORMATION
  Report Type: Report from Study
  Country: US (occurrence: US)
  Receive Date: 20210722
  Receipt Date: 20210921
  Transmission Date: 20211014
  Serious: Yes (Hospitalization, Disabling, Other)
  Sender: FDA-Public Use
  Company Number: US-TAKEDA-2021TUS044028

PATIENT
  Age: 71 Year
  Sex: Female

DRUGS (20)
  1. TEDUGLUTIDE [Suspect]
     Active Substance: TEDUGLUTIDE
     Indication: SHORT-BOWEL SYNDROME
     Dosage: 2.4 MILLIGRAM (0.05MG/KG), QD
     Route: 065
     Dates: start: 201709, end: 20190430
  2. TEDUGLUTIDE [Suspect]
     Active Substance: TEDUGLUTIDE
     Dosage: 2.5 MILLIGRAM (0.05MG/KG), 4/WEEK
     Route: 065
     Dates: start: 202011, end: 202012
  3. TEDUGLUTIDE [Suspect]
     Active Substance: TEDUGLUTIDE
     Dosage: 2.0 MILLIGRAM (0.05MG/KG), QD
     Route: 065
     Dates: start: 202012
  4. URSODIOL. [Concomitant]
     Active Substance: URSODIOL
     Dosage: 1 DOSAGE FORM, BID
     Route: 048
     Dates: start: 20190227, end: 20190528
  5. TEDUGLUTIDE [Suspect]
     Active Substance: TEDUGLUTIDE
     Indication: SHORT-BOWEL SYNDROME
     Dosage: 2.4 MILLIGRAM (0.05MG/KG), QD
     Route: 065
     Dates: start: 201709, end: 20190430
  6. TEDUGLUTIDE [Suspect]
     Active Substance: TEDUGLUTIDE
     Dosage: 2.5 MILLIGRAM (0.05MG/KG), QD
     Route: 065
     Dates: start: 20190430, end: 202011
  7. TEDUGLUTIDE [Suspect]
     Active Substance: TEDUGLUTIDE
     Dosage: 2.5 MILLIGRAM (0.05MG/KG), QD
     Route: 065
     Dates: start: 20190430, end: 202011
  8. TEDUGLUTIDE [Suspect]
     Active Substance: TEDUGLUTIDE
     Dosage: 2.5 MILLIGRAM (0.05MG/KG), 4/WEEK
     Route: 065
     Dates: start: 202011, end: 202012
  9. TEDUGLUTIDE [Suspect]
     Active Substance: TEDUGLUTIDE
     Dosage: 2.5 MILLIGRAM (0.05MG/KG), 4/WEEK
     Route: 065
     Dates: start: 202011, end: 202012
  10. TEDUGLUTIDE [Suspect]
     Active Substance: TEDUGLUTIDE
     Indication: SHORT-BOWEL SYNDROME
     Dosage: 2.4 MILLIGRAM (0.05MG/KG), QD
     Route: 065
     Dates: start: 201709, end: 20190430
  11. TEDUGLUTIDE [Suspect]
     Active Substance: TEDUGLUTIDE
     Dosage: 2.0 MILLIGRAM (0.05MG/KG), QD
     Route: 065
     Dates: start: 202012
  12. MSIR [Concomitant]
     Active Substance: MORPHINE SULFATE
     Indication: PROCEDURAL PAIN
     Dosage: 1 DOSAGE FORM, PRN
     Route: 048
     Dates: start: 2018, end: 2019
  13. TEDUGLUTIDE [Suspect]
     Active Substance: TEDUGLUTIDE
     Dosage: 2.0 MILLIGRAM (0.05MG/KG), QD
     Route: 065
     Dates: start: 202012
  14. URSODIOL. [Concomitant]
     Active Substance: URSODIOL
     Indication: CHOLESTASIS
     Dosage: 1 DOSAGE FORM, BID
     Route: 048
     Dates: start: 20200423, end: 20200722
  15. TEDUGLUTIDE [Suspect]
     Active Substance: TEDUGLUTIDE
     Dosage: 2.5 MILLIGRAM (0.05MG/KG), QD
     Route: 065
     Dates: start: 20190430, end: 202011
  16. TEDUGLUTIDE [Suspect]
     Active Substance: TEDUGLUTIDE
     Dosage: 2.0 MILLIGRAM (0.05MG/KG), QD
     Route: 065
     Dates: start: 202012
  17. CYANOCOBALAMIN. [Concomitant]
     Active Substance: CYANOCOBALAMIN
     Indication: VITAMIN B12
     Dosage: 1 MILLIGRAM, MONTHLY
     Route: 030
     Dates: start: 2019
  18. TEDUGLUTIDE [Suspect]
     Active Substance: TEDUGLUTIDE
     Indication: SHORT-BOWEL SYNDROME
     Dosage: 2.4 MILLIGRAM (0.05MG/KG), QD
     Route: 065
     Dates: start: 201709, end: 20190430
  19. TEDUGLUTIDE [Suspect]
     Active Substance: TEDUGLUTIDE
     Dosage: 2.5 MILLIGRAM (0.05MG/KG), QD
     Route: 065
     Dates: start: 20190430, end: 202011
  20. TEDUGLUTIDE [Suspect]
     Active Substance: TEDUGLUTIDE
     Dosage: 2.5 MILLIGRAM (0.05MG/KG), 4/WEEK
     Route: 065
     Dates: start: 202011, end: 202012

REACTIONS (1)
  - Femoral neck fracture [Recovered/Resolved]

NARRATIVE: CASE EVENT DATE: 20200708
